FAERS Safety Report 19234116 (Version 1)
Quarter: 2021Q2

REPORT INFORMATION
  Report Type: Spontaneous
  Country: NL (occurrence: NL)
  Receive Date: 20210508
  Receipt Date: 20210508
  Transmission Date: 20210717
  Serious: Yes (Life-Threatening, Other)
  Sender: FDA-Public Use
  Company Number: NL-TEVA-2021-NL-1907956

PATIENT
  Sex: Female
  Weight: 60 kg

DRUGS (10)
  1. CANDESARTAN TABLET 16MG / BRAND NAME NOT SPECIFIED [Concomitant]
     Dosage: THERAPY START DATE ASKU, THERAPY END DATE ASKU
  2. METFORMINE TABLET   500MG / BRAND NAME NOT SPECIFIED [Concomitant]
     Active Substance: METFORMIN HYDROCHLORIDE
     Dosage: THERAPY START DATE ASKU, THERAPY END DATE ASKU
  3. ACETYLSALICYLZUUR TABLET  80MG / BRAND NAME NOT SPECIFIED [Concomitant]
     Active Substance: ASPIRIN
     Dosage: THERAPY START DATE ASKU, THERAPY END DATE ASKU
  4. LOPERAMIDE CAPSULE 2MG / BRAND NAME NOT SPECIFIED [Concomitant]
     Dosage: THERAPY START DATE ASKU, THERAPY END DATE ASKU
  5. CARBAMAZEPINE TABLET MGA 200MG / BRAND NAME NOT SPECIFIED [Suspect]
     Active Substance: CARBAMAZEPINE
     Indication: EPILEPSY
     Dosage: 200 MILLIGRAM DAILY; 2X PER DAY 0.5 PIECES
     Dates: start: 20210402, end: 20210410
  6. PANTOPRAZOL TABLET MSR 40MG / BRAND NAME NOT SPECIFIED [Concomitant]
     Active Substance: PANTOPRAZOLE
     Dosage: THERAPY START DATE ASKU, THERAPY END DATE ASKU
  7. NIFEDIPINE CAPSULE 10MG / BRAND NAME NOT SPECIFIED [Concomitant]
     Dosage: THERAPY START DATE ASKU, THERAPY END DATE ASKU
  8. PARACETAMOL TABLET  500MG / BRAND NAME NOT SPECIFIED [Concomitant]
     Dosage: THERAPY START DATE ASKU, THERAPY END DATE ASKU
  9. PERINDOPRIL TABLET 2MG (ERBUMINE) / BRAND NAME NOT SPECIFIED [Concomitant]
     Dosage: THERAPY START DATE ASKU, THERAPY END DATE ASKU
  10. METOPROLOL TABLET  100MG / BRAND NAME NOT SPECIFIED [Concomitant]
     Active Substance: METOPROLOL
     Dosage: THERAPY START DATE ASKU, THERAPY END DATE ASKU

REACTIONS (1)
  - Hyponatraemia [Recovered/Resolved]
